FAERS Safety Report 25458634 (Version 1)
Quarter: 2025Q2

REPORT INFORMATION
  Report Type: Spontaneous
  Country: DE (occurrence: DE)
  Receive Date: 20250620
  Receipt Date: 20250620
  Transmission Date: 20250716
  Serious: Yes (Other)
  Sender: SUNOVION
  Company Number: None

PATIENT

DRUGS (3)
  1. ESTRADIOL\NORETHINDRONE ACETATE\RELUGOLIX [Interacting]
     Active Substance: ESTRADIOL\NORETHINDRONE ACETATE\RELUGOLIX
     Indication: Endometriosis
     Route: 048
     Dates: start: 20241122
  2. GABAPENTIN [Interacting]
     Active Substance: GABAPENTIN
     Indication: Endometriosis
     Dosage: 200MG ABENDS
     Route: 048
     Dates: start: 20250201
  3. GABAPENTIN [Interacting]
     Active Substance: GABAPENTIN
     Indication: Pain

REACTIONS (2)
  - Haematochezia [Recovering/Resolving]
  - Drug interaction [Unknown]

NARRATIVE: CASE EVENT DATE: 20250201
